FAERS Safety Report 23847938 (Version 5)
Quarter: 2024Q2

REPORT INFORMATION
  Report Type: Spontaneous
  Country: US (occurrence: US)
  Receive Date: 20240513
  Receipt Date: 20240624
  Transmission Date: 20240716
  Serious: Yes (Death, Hospitalization, Other)
  Sender: FDA-Public Use
  Company Number: US-PFIZER INC-202400105567

PATIENT
  Age: 89 Year
  Sex: Male
  Weight: 70.3 kg

DRUGS (33)
  1. VYNDAMAX [Suspect]
     Active Substance: TAFAMIDIS
     Indication: Amyloidosis
     Dosage: 61 MG, DAILY
     Route: 048
     Dates: start: 20200403, end: 20240209
  2. VYNDAMAX [Suspect]
     Active Substance: TAFAMIDIS
     Indication: Cardiac amyloidosis
  3. VYNDAMAX [Suspect]
     Active Substance: TAFAMIDIS
     Indication: Cardiac amyloidosis
  4. VYNDAMAX [Suspect]
     Active Substance: TAFAMIDIS
     Indication: Cardiac failure chronic
  5. VYNDAMAX [Suspect]
     Active Substance: TAFAMIDIS
     Indication: Arteriosclerosis coronary artery
  6. VYNDAMAX [Suspect]
     Active Substance: TAFAMIDIS
     Indication: Atrial fibrillation
  7. VYNDAMAX [Suspect]
     Active Substance: TAFAMIDIS
     Indication: Essential hypertension
  8. VYNDAMAX [Suspect]
     Active Substance: TAFAMIDIS
     Indication: Atrial flutter
  9. ZYLOPRIM [Concomitant]
     Active Substance: ALLOPURINOL
     Dosage: TAKE 1.5 TABLETS (150 MG TOTAL) BY MOUTH DAILY
     Route: 048
  10. GAVISCON [ALUMINIUM HYDROXIDE;MAGNESIUM CARBONATE] [Concomitant]
     Indication: Dyspepsia
     Dosage: TAKE 2 TABLETS BY MOUTH NIGHTLY AT BEDTIME AS NEEDED
     Route: 048
  11. ELIQUIS [Concomitant]
     Active Substance: APIXABAN
     Dosage: TAKE 1 TABLET (2.5 MG TOTAL) BY MOUTH 2 (TWO) TIMES A DAY
     Route: 048
  12. VITAMIN D3 [Concomitant]
     Active Substance: CHOLECALCIFEROL
     Dosage: 2000 IU, DAILY
     Route: 048
  13. TEMOVATE [Concomitant]
     Active Substance: CLOBETASOL PROPIONATE
     Dosage: APPLY 1 APPLICATION TOPICALLY 2 (TWO) TIMES A DAY
     Route: 061
  14. FLEXERIL [Concomitant]
     Active Substance: CYCLOBENZAPRINE HYDROCHLORIDE
     Indication: Muscle spasms
     Dosage: 1 TABLET (5 MG TOTAL) BY MOUTH NIGHTLY AT BEDTIME AS NEEDED.
     Route: 048
  15. ACETAMINOPHEN\DIPHENHYDRAMINE HYDROCHLORIDE [Concomitant]
     Active Substance: ACETAMINOPHEN\DIPHENHYDRAMINE HYDROCHLORIDE
     Dosage: TAKE 2 TABLETS BY MOUTH NIGHTLY AT BEDTIME
     Route: 048
  16. TRUSOPT [Concomitant]
     Active Substance: DORZOLAMIDE HYDROCHLORIDE
     Dosage: PLACE 1 DROP INTO EACH EYE 2 (TWO) TIMES A DAY
     Route: 047
  17. ZETIA [Concomitant]
     Active Substance: EZETIMIBE
     Dosage: TAKE 0.5 TABLETS (5MG TOTAL) BY MOUTH DAILY
     Route: 048
  18. PROSCAR [Concomitant]
     Active Substance: FINASTERIDE
     Dosage: TAKE 5 MG BY MOUTH DAILY
     Route: 048
  19. FUROSEMIDE [Concomitant]
     Active Substance: FUROSEMIDE
     Dosage: 2 TABLETS (160 MG) IN THE AM. 1 TABLET (80 MG) IN PM
  20. FUROSEMIDE [Concomitant]
     Active Substance: FUROSEMIDE
     Dosage: 160 MG, 2X/DAY
  21. NEURONTIN [Concomitant]
     Active Substance: GABAPENTIN
     Dosage: TAKE 2 CAPSULES (200 MG TOTAL) BY MOUTH NIGHTLY AT BEDTIME
     Route: 048
  22. CULTURELLE [Concomitant]
     Active Substance: LACTOBACILLUS RHAMNOSUS
     Dosage: 1 DF, DAILY
     Route: 048
  23. ZAROXOLYN [Concomitant]
     Active Substance: METOLAZONE
     Indication: Overweight
     Dosage: 2.5 MG
  24. TOPROL XL [Concomitant]
     Active Substance: METOPROLOL SUCCINATE
     Dosage: TAKE 1 TABLET (25 MG TOTAL) BY MOUTH 2 (TWO) TIMES A DAY
     Route: 048
  25. TOPROL XL [Concomitant]
     Active Substance: METOPROLOL SUCCINATE
     Dosage: 12.5 MG DAILY TO 6.25 MG DAILY
  26. TOPROL XL [Concomitant]
     Active Substance: METOPROLOL SUCCINATE
     Dosage: 12.5 MG DAILY TO 6.25 MG DAILY
     Dates: start: 202005
  27. NITROSTAT [Concomitant]
     Active Substance: NITROGLYCERIN
     Indication: Chest pain
     Dosage: PLACE 1 TABLET (0.3 MG TOTAL) UNDER THE TONGUE EVERY 5 (FIVE) MINUTES AS NEEDED
     Route: 060
  28. PROTONIX [Concomitant]
     Active Substance: PANTOPRAZOLE SODIUM
     Indication: Barrett^s oesophagus
     Dosage: TAKE 20 MG BY MOUTH DAILY.
     Route: 048
  29. LIVALO [Concomitant]
     Active Substance: PITAVASTATIN CALCIUM
     Dosage: TAKE 1 TABLET BY MOUTH NIGHTLY AT BEDTIME
     Route: 048
  30. KLOR CON M [Concomitant]
     Active Substance: POTASSIUM CHLORIDE
     Dosage: TAKE 2 TABLETS (40 MEQ TOTAL) BY MOUTH EVERY MORNING AND EVERY EVENING
  31. ULTRAM [Concomitant]
     Active Substance: TRAMADOL HYDROCHLORIDE
     Indication: Pain
     Dosage: TAKE 1 TABLET (50 MG TOTAL) BY MOUTH NIGHTLY AT BEDTIME AS NEEDED
     Route: 048
  32. PITAVASTATIN CALCIUM [Concomitant]
     Active Substance: PITAVASTATIN CALCIUM
     Indication: Hypercholesterolaemia
     Dosage: 1 MG, DAILY
  33. EZETIMIBE [Concomitant]
     Active Substance: EZETIMIBE
     Indication: Hypercholesterolaemia
     Dosage: 5 MG, DAILY

REACTIONS (20)
  - Death [Fatal]
  - Bradycardia [Unknown]
  - Hypokalaemia [Recovering/Resolving]
  - Weight decreased [Unknown]
  - Chest discomfort [Recovered/Resolved]
  - Implant site pain [Unknown]
  - Hypotension [Unknown]
  - Blood chloride decreased [Unknown]
  - Blood urea increased [Unknown]
  - Blood creatinine increased [Unknown]
  - Blood magnesium increased [Unknown]
  - Blood phosphorus increased [Unknown]
  - Alanine aminotransferase decreased [Unknown]
  - Haematocrit decreased [Unknown]
  - Blood triglycerides increased [Unknown]
  - Haemoglobin decreased [Unknown]
  - Prothrombin time prolonged [Unknown]
  - Full blood count abnormal [Unknown]
  - Lipids abnormal [Unknown]
  - Metabolic function test abnormal [Unknown]

NARRATIVE: CASE EVENT DATE: 20210318
